FAERS Safety Report 5084780-0 (Version None)
Quarter: 2006Q3

REPORT INFORMATION
  Report Type: 
  Country: None (occurrence: None)
  Receive Date: 20060815
  Receipt Date: 20060727
  Transmission Date: 20061208
  Serious: Yes (Hospitalization)
  Sender: FDA-Public Use
  Company Number: PL200512003387

PATIENT
  Age: 72 Year
  Sex: Female

DRUGS (5)
  1. HUMAN INSULIN (RDNA ORIGIN) NPH (HUMAN INSULIN (RDNA ORIGIN) NPH UNKNO [Suspect]
     Dosage: 14 U, 2/D, SUBCUTANEOUS
     Route: 058
     Dates: start: 20031020
  2. SIMVASTATIN [Concomitant]
  3. INHIBACE [Concomitant]
  4. BISOPROLOL FUMARATE [Concomitant]
  5. ACARD (ACETYLSALICYCLIC ACID) [Concomitant]

REACTIONS (3)
  - CATARACT [None]
  - EYE INJURY [None]
  - GLAUCOMA [None]
